FAERS Safety Report 15786362 (Version 2)
Quarter: 2019Q1

REPORT INFORMATION
  Report Type: Report from Study
  Country: IT (occurrence: IT)
  Receive Date: 20190103
  Receipt Date: 20190319
  Transmission Date: 20190417
  Serious: Yes (Other)
  Sender: FDA-Public Use
  Company Number: IT-MYLANLABS-2018M1097802

PATIENT
  Age: 66 Year
  Sex: Female

DRUGS (5)
  1. TAPAZOLE [Concomitant]
     Active Substance: METHIMAZOLE
     Indication: AUTOIMMUNE THYROIDITIS
     Dosage: 1 DOSAGE FORM
     Route: 048
  2. RIFADIN [Suspect]
     Active Substance: RIFAMPIN
     Indication: OSTEOMYELITIS
     Dosage: 2 DOSAGE FORM, QD
     Route: 048
     Dates: start: 20180618, end: 20180621
  3. NIFEDIPINE. [Concomitant]
     Active Substance: NIFEDIPINE
     Dosage: 30 MILLIGRAM
     Route: 048
  4. LEVOFLOXACINA MYLAN 250 MG COMPRIMIDOS REVESTIDOS POR PEL?CULA [Suspect]
     Active Substance: LEVOFLOXACIN
     Indication: OSTEOMYELITIS
     Dosage: 3 DOSAGE FORM, QD
     Route: 048
     Dates: start: 20180618, end: 20180621
  5. CARDIOASPIRIN [Concomitant]
     Active Substance: ASPIRIN
     Dosage: 1 DOSAGE FORM
     Route: 048

REACTIONS (3)
  - Febrile convulsion [Recovered/Resolved with Sequelae]
  - Macroglossia [Recovered/Resolved with Sequelae]
  - Erythema [Recovered/Resolved with Sequelae]

NARRATIVE: CASE EVENT DATE: 20180619
